FAERS Safety Report 7741042-8 (Version None)
Quarter: 2011Q3

REPORT INFORMATION
  Report Type: 
  Country: None (occurrence: None)
  Receive Date: 20110909
  Receipt Date: 20110831
  Transmission Date: 20111222
  Serious: Yes (Death, Life-Threatening, Hospitalization, Other)
  Sender: FDA-Public Use
  Company Number: NL-GENZYME-CLOF-1001589

PATIENT
  Sex: Female

DRUGS (6)
  1. CIPROFLAXACIN [Concomitant]
     Indication: PRODUCT USED FOR UNKNOWN INDICATION
     Dosage: 500 UNK, UNK
     Route: 048
     Dates: start: 20110411
  2. TAROSIN [Concomitant]
     Indication: PYREXIA
     Dosage: 4500 UNK, UNK
     Route: 042
  3. CYTARABINE [Suspect]
     Indication: ACUTE MYELOID LEUKAEMIA
     Dosage: 304 MG, QD DAY 1-5
     Route: 042
     Dates: start: 20110411, end: 20110418
  4. EVOLTRA [Suspect]
     Indication: ACUTE MYELOID LEUKAEMIA
     Dosage: 15 MG (10 MG/M2), QD
     Route: 042
     Dates: start: 20110411, end: 20110415
  5. IDARUBICIN HCL [Suspect]
     Indication: ACUTE MYELOID LEUKAEMIA
     Dosage: 18 MG, QD DAY 1-3
     Route: 042
     Dates: start: 20110411, end: 20110413
  6. FLUCONAZOLE [Concomitant]
     Indication: PRODUCT USED FOR UNKNOWN INDICATION
     Dosage: 200 UNK, UNK
     Route: 048
     Dates: start: 20110411

REACTIONS (2)
  - RESPIRATORY FAILURE [None]
  - SEPSIS [None]
